FAERS Safety Report 25059483 (Version 1)
Quarter: 2025Q1

REPORT INFORMATION
  Report Type: Spontaneous
  Country: DE (occurrence: DE)
  Receive Date: 20250310
  Receipt Date: 20250310
  Transmission Date: 20250409
  Serious: Yes (Other)
  Sender: CHATTEM
  Company Number: DE-OPELLA-2025OHG005994

PATIENT
  Age: 89 Year
  Sex: Female

DRUGS (2)
  1. ALUMINUM HYDROXIDE\MAGNESIUM HYDROXIDE [Suspect]
     Active Substance: ALUMINUM HYDROXIDE\MAGNESIUM HYDROXIDE
     Indication: Gastric ulcer
  2. ALUMINUM HYDROXIDE\MAGNESIUM HYDROXIDE [Suspect]
     Active Substance: ALUMINUM HYDROXIDE\MAGNESIUM HYDROXIDE

REACTIONS (13)
  - Swollen tongue [Unknown]
  - Lip swelling [Unknown]
  - Pharyngeal swelling [Unknown]
  - Stiff tongue [Unknown]
  - Musculoskeletal stiffness [Unknown]
  - Dysphagia [Unknown]
  - Dyspnoea [Unknown]
  - Oropharyngeal pain [Unknown]
  - Discomfort [Unknown]
  - Anxiety [Unknown]
  - Vomiting [Unknown]
  - Decreased appetite [Unknown]
  - Product expiration date issue [Unknown]
